FAERS Safety Report 9765933 (Version 2)
Quarter: 2014Q1

REPORT INFORMATION
  Report Type: Spontaneous
  Country: US (occurrence: US)
  Receive Date: 20131217
  Receipt Date: 20140107
  Transmission Date: 20141002
  Serious: Yes (Other)
  Sender: FDA-Public Use
  Company Number: US-PFIZER INC-2013358329

PATIENT
  Age: 12 Year
  Sex: Female
  Weight: 38.1 kg

DRUGS (1)
  1. GENOTROPIN [Suspect]
     Indication: GROWTH RETARDATION
     Dosage: 2.2 MG, DAILY
     Route: 058
     Dates: start: 20130205

REACTIONS (3)
  - Type 1 diabetes mellitus [Not Recovered/Not Resolved]
  - Hyperphagia [Unknown]
  - Menstruation irregular [Unknown]
